FAERS Safety Report 15325502 (Version 2)
Quarter: 2018Q4

REPORT INFORMATION
  Report Type: Spontaneous
  Country: JP (occurrence: JP)
  Receive Date: 20180828
  Receipt Date: 20181010
  Transmission Date: 20190204
  Serious: Yes (Hospitalization, Other)
  Sender: FDA-Public Use
  Company Number: JP-MYLANLABS-2018M1055924

PATIENT
  Age: 68 Year
  Sex: Female
  Weight: 57 kg

DRUGS (4)
  1. PREDNISOLONE. [Suspect]
     Active Substance: PREDNISOLONE
     Indication: SCLERODERMA
     Dosage: 5 MG, QD
     Route: 048
     Dates: start: 20180312, end: 20180612
  2. CANDESARTAN TABLETS 4MG [PFIZER] [Suspect]
     Active Substance: CANDESARTAN
     Indication: HYPERTENSION
     Dosage: 2 MG, QD
     Route: 048
     Dates: start: 20180329, end: 20180625
  3. CANDESARTAN TABLETS 4MG [PFIZER] [Suspect]
     Active Substance: CANDESARTAN
     Indication: CARDIAC FAILURE CHRONIC
  4. CANDESARTAN TABLETS 4MG [PFIZER] [Suspect]
     Active Substance: CANDESARTAN
     Indication: MITRAL VALVE INCOMPETENCE

REACTIONS (2)
  - Leukopenia [Not Recovered/Not Resolved]
  - Thrombocytopenia [Not Recovered/Not Resolved]

NARRATIVE: CASE EVENT DATE: 20180625
